FAERS Safety Report 8178598-X (Version None)
Quarter: 2012Q1

REPORT INFORMATION
  Report Type: 
  Country: None (occurrence: None)
  Receive Date: 20120301
  Receipt Date: 20120223
  Transmission Date: 20120608
  Serious: Yes (Hospitalization)
  Sender: FDA-Public Use
  Company Number: PHHO2011NL019520

PATIENT
  Sex: Female
  Weight: 65 kg

DRUGS (5)
  1. FUROSEMIDE [Concomitant]
     Dosage: 250 MG, UNK
     Dates: start: 20110927
  2. PREDNISONE TAB [Suspect]
     Indication: RENAL TRANSPLANT
     Dosage: 10 MG, UNK
     Dates: start: 20110927
  3. NEXIUM [Concomitant]
     Indication: PROPHYLAXIS
     Dosage: UNK
     Dates: start: 20110927
  4. MYFORTIC [Suspect]
     Indication: RENAL TRANSPLANT
     Dosage: 300 MG, BID
     Dates: start: 20110927
  5. PROGRAF [Suspect]
     Indication: RENAL TRANSPLANT
     Dosage: 6 MG, BID
     Dates: start: 20110927, end: 20110930

REACTIONS (2)
  - TOXICITY TO VARIOUS AGENTS [None]
  - NEPHROPATHY TOXIC [None]
